FAERS Safety Report 7314328-9 (Version None)
Quarter: 2011Q1

REPORT INFORMATION
  Report Type: 
  Country: None (occurrence: None)
  Receive Date: 20110225
  Receipt Date: 20100903
  Transmission Date: 20110831
  Serious: No
  Sender: FDA-Public Use
  Company Number: US-MYLANLABS-2010S1013221

PATIENT
  Age: 39 Year
  Sex: Male
  Weight: 70.31 kg

DRUGS (8)
  1. AMNESTEEM [Suspect]
  2. ALLEGRA [Concomitant]
  3. ADVAIR DISKUS 100/50 [Concomitant]
  4. PROPECIA [Concomitant]
  5. OMEGA 3 /00931501/ [Concomitant]
  6. AMNESTEEM [Suspect]
     Indication: ACNE
     Route: 048
     Dates: start: 20091130, end: 20100721
  7. CLARAVIS [Suspect]
     Indication: ACNE
  8. PRAVASTATIN [Concomitant]

REACTIONS (4)
  - DRUG INTOLERANCE [None]
  - BURSITIS [None]
  - ACNE [None]
  - ALOPECIA [None]
